FAERS Safety Report 9613254 (Version 3)
Quarter: 2014Q1

REPORT INFORMATION
  Report Type: Spontaneous
  Country: US (occurrence: US)
  Receive Date: 20131010
  Receipt Date: 20140121
  Transmission Date: 20141002
  Serious: Yes (Hospitalization)
  Sender: FDA-Public Use
  Company Number: US-BAYER-2013-122225

PATIENT
  Age: 25 Year
  Sex: Female
  Weight: 58.96 kg

DRUGS (7)
  1. MIRENA [Suspect]
     Indication: CONTRACEPTION
     Dosage: 20 MCG/24HR, CONT
     Route: 015
     Dates: start: 20070901, end: 20110525
  2. AUGMENTIN [Concomitant]
  3. OMEPRAZOLE [Concomitant]
  4. EXCEDRIN EXTRA STRENGTH [Concomitant]
     Indication: HEADACHE
  5. CLINDAMYCIN [Concomitant]
  6. ZOSYN [Concomitant]
  7. PROTONIX [Concomitant]

REACTIONS (5)
  - Uterine perforation [None]
  - Abdominal pain lower [None]
  - Injury [None]
  - Pain [None]
  - Emotional distress [None]
